FAERS Safety Report 6992668 (Version 2)
Quarter: 2013Q4

REPORT INFORMATION
  Report Type: Spontaneous
  Country: FR (occurrence: None)
  Receive Date: 20090504
  Receipt Date: 20131223
  Transmission Date: 20140711
  Serious: Yes (Hospitalization)
  Sender: FDA-Public Use
  Company Number: 257612

PATIENT
  Age: 64 Year
  Sex: Female

DRUGS (6)
  1. CARBOPLATIN (CARBOPLATIN) [Suspect]
     Indication: BREAST CANCER
     Dosage: 700 MG, INTRAVENOUS
     Route: 042
     Dates: start: 20090318, end: 20090318
  2. RANIPLEX [Concomitant]
  3. TAXOL [Concomitant]
  4. POLARAMINE /00043702/ [Concomitant]
  5. SOLU-MEDRONE [Concomitant]
  6. ONDANSETRON [Concomitant]

REACTIONS (3)
  - Erythema [None]
  - Nausea [None]
  - Feeling hot [None]
